FAERS Safety Report 8423750 (Version 2)
Quarter: 2014Q1

REPORT INFORMATION
  Report Type: Spontaneous
  Country: US (occurrence: US)
  Receive Date: 20120224
  Receipt Date: 20140128
  Transmission Date: 20141002
  Serious: No
  Sender: FDA-Public Use
  Company Number: US-JNJFOC-20120207032

PATIENT
  Sex: Female
  Weight: 63.5 kg

DRUGS (2)
  1. FENTANYL [Suspect]
     Indication: PRODUCT USED FOR UNKNOWN INDICATION
     Route: 062
     Dates: start: 2010, end: 2011
  2. DURAGESIC [Suspect]
     Indication: PAIN
     Route: 062
     Dates: start: 2011

REACTIONS (2)
  - Wrong technique in drug usage process [Recovered/Resolved]
  - Product quality issue [Recovered/Resolved]
